FAERS Safety Report 9727599 (Version 1)
Quarter: 2013Q4

REPORT INFORMATION
  Report Type: Report from Study
  Country: KR (occurrence: KR)
  Receive Date: 20131203
  Receipt Date: 20131203
  Transmission Date: 20140711
  Serious: Yes (Hospitalization)
  Sender: FDA-Public Use
  Company Number: KR-MERCK-1311KOR012458

PATIENT
  Age: 68 Year
  Sex: Male
  Weight: 51 kg

DRUGS (3)
  1. VORINOSTAT [Suspect]
     Indication: GASTRIC CANCER
     Dosage: 400 MG, QD; STRENGTH: 400 MG
     Route: 048
     Dates: start: 20131111, end: 20131122
  2. CISPLATIN [Suspect]
     Indication: GASTRIC CANCER
     Dosage: TOTAL DAILY DOSE: 69 MG QD; STRENGHT: 45MG/M2
     Route: 042
     Dates: start: 20131111, end: 20131111
  3. CAPECITABINE [Suspect]
     Indication: GASTRIC CANCER
     Dosage: 1200 MG, BID; STRENGHT: 1200 MG; CAPSULE
     Route: 048
     Dates: start: 20131111, end: 20131124

REACTIONS (2)
  - Dyspnoea [Recovered/Resolved]
  - Anaemia [Recovered/Resolved]
